FAERS Safety Report 19259104 (Version 1)
Quarter: 2021Q2

REPORT INFORMATION
  Report Type: Spontaneous
  Country: US (occurrence: US)
  Receive Date: 20210514
  Receipt Date: 20210514
  Transmission Date: 20210717
  Serious: No
  Sender: FDA-Public Use
  Company Number: US-ROMARKLABS-2020-US-000251

PATIENT
  Age: 80 Year
  Sex: Female

DRUGS (3)
  1. ALINIA [Suspect]
     Active Substance: NITAZOXANIDE
     Indication: HELICOBACTER INFECTION
     Dosage: ONE TABLET TWICE DAILY
     Route: 048
     Dates: start: 20200916, end: 20200918
  2. CLARITHOMYOCIN [Concomitant]
     Indication: HELICOBACTER INFECTION
     Dosage: ONE TABLET BY MOUTH TWICE DAILY
     Route: 048
     Dates: start: 20200916
  3. BENICAR [Concomitant]
     Active Substance: OLMESARTAN MEDOXOMIL
     Indication: HYPERTENSION
     Dosage: UNKNOWN DOSAGE TAKEN AT NIGHT

REACTIONS (2)
  - Swelling face [Not Recovered/Not Resolved]
  - Headache [Not Recovered/Not Resolved]

NARRATIVE: CASE EVENT DATE: 20200916
